FAERS Safety Report 22176324 (Version 3)
Quarter: 2023Q2

REPORT INFORMATION
  Report Type: Report from Study
  Country: US (occurrence: US)
  Receive Date: 20230405
  Receipt Date: 20230626
  Transmission Date: 20230722
  Serious: Yes (Congenital Anomaly, Other)
  Sender: FDA-Public Use
  Company Number: US-GILEAD-2023-0622534

PATIENT
  Sex: Female
  Weight: 3.19 kg

DRUGS (2)
  1. EMTRICITABINE\TENOFOVIR DISOPROXIL FUMARATE [Suspect]
     Active Substance: EMTRICITABINE\TENOFOVIR DISOPROXIL FUMARATE
     Indication: HIV infection
     Dosage: 1 DOSAGE FORM
     Route: 064
  2. TIVICAY [Suspect]
     Active Substance: DOLUTEGRAVIR SODIUM
     Indication: Product used for unknown indication
     Dosage: 50 MG, QD
     Route: 064

REACTIONS (5)
  - Gastrointestinal perforation [Unknown]
  - Volvulus [Unknown]
  - Microcephaly [Unknown]
  - Syndactyly [Not Recovered/Not Resolved]
  - Foetal exposure during pregnancy [Recovered/Resolved]
